FAERS Safety Report 21841339 (Version 1)
Quarter: 2023Q1

REPORT INFORMATION
  Report Type: Report from Study
  Country: MX (occurrence: MX)
  Receive Date: 20230110
  Receipt Date: 20230110
  Transmission Date: 20230418
  Serious: Yes (Other)
  Sender: FDA-Public Use
  Company Number: MX-ABBOTT-2023A-1358347

PATIENT
  Age: 71 Year
  Sex: Female

DRUGS (9)
  1. FENOFIBRATE [Suspect]
     Active Substance: FENOFIBRATE
     Indication: Diabetes mellitus
     Dosage: A DAILY INTAKE AT NIGHT ORALLY, DAILY DOSE: 160 MILLIGRAM
     Route: 048
  2. OMEPRAZOLE [Concomitant]
     Active Substance: OMEPRAZOLE
     Indication: Prophylaxis
     Dosage: ONE DAILY, DAILY DOSE 40 MILLIGRAM??40MG
  3. Pharmaton [Concomitant]
     Indication: Mental disorder
     Dosage: ONCE A DAY
  4. CEFALIV [Concomitant]
     Indication: Product used for unknown indication
     Dosage: ONE TABLET DAILY
  5. JANUMET [Concomitant]
     Active Substance: METFORMIN HYDROCHLORIDE\SITAGLIPTIN PHOSPHATE
     Indication: Diabetes mellitus
     Dosage: TAKE A TABLET IN THE MORNING AND ONE AT NIGHT, JANUMET 50/1000 OR 500/1000
  6. NORVASC [Concomitant]
     Active Substance: AMLODIPINE BESYLATE
     Indication: Hypertension
     Dosage: 10MG ONE TABLET DAILY
  7. FLUOXAC [Concomitant]
     Indication: Depression
     Dosage: 20MG, ONE TABLET A DAY
  8. ALPRAZOLAM [Concomitant]
     Active Substance: ALPRAZOLAM
     Indication: Depression
     Dosage: 1 GR, HALF A TABLET AT NIGHT
  9. NEUROTIN [Concomitant]
     Active Substance: GABAPENTIN
     Indication: Nervous system disorder
     Dosage: 600 MG, ONE TABLET DAILY

REACTIONS (5)
  - Depression [Unknown]
  - Weight decreased [Recovered/Resolved]
  - Dizziness [Unknown]
  - Hypertension [Unknown]
  - Off label use [Unknown]

NARRATIVE: CASE EVENT DATE: 20130101
